FAERS Safety Report 9213516 (Version 1)
Quarter: 2013Q2

REPORT INFORMATION
  Report Type: Spontaneous
  Country: US (occurrence: US)
  Receive Date: 20130405
  Receipt Date: 20130405
  Transmission Date: 20140414
  Serious: No
  Sender: FDA-Public Use
  Company Number: US-BAYER-2013-041231

PATIENT
  Age: 28 Year
  Sex: Female
  Weight: 71.66 kg

DRUGS (9)
  1. BETASERON [Suspect]
     Indication: MULTIPLE SCLEROSIS
     Dosage: UNK
     Dates: start: 2008
  2. ADDERALL [Concomitant]
  3. ADVIL [Concomitant]
  4. CRANBERRY [Concomitant]
  5. GILENYA [Concomitant]
  6. MULTIVITAMIN [Concomitant]
  7. ORTHO TRI-CYCLEN [Concomitant]
  8. PROBIOTICS [Concomitant]
  9. PROZAC [Concomitant]

REACTIONS (4)
  - Injection site erythema [None]
  - Injection site pruritus [None]
  - Injection site pain [None]
  - Injection site bruising [None]
